FAERS Safety Report 4937357-9 (Version None)
Quarter: 2006Q1

REPORT INFORMATION
  Report Type: 
  Country: None (occurrence: None)
  Receive Date: 20060309
  Receipt Date: 20040610
  Transmission Date: 20060701
  Serious: No
  Sender: FDA-Public Use
  Company Number: JP-BOEHRINGER INGELHEIM PHARMACEUTICALS, INC.-2004-BP-04983NB

PATIENT
  Sex: Female
  Weight: 59 kg

DRUGS (7)
  1. MEXITIL [Suspect]
     Indication: PAIN
     Route: 048
     Dates: start: 20040604, end: 20040609
  2. CRAVIT [Suspect]
     Indication: CYSTITIS
     Route: 048
     Dates: start: 20040604, end: 20040608
  3. TEGRETOL [Concomitant]
     Route: 048
     Dates: start: 20040507, end: 20040610
  4. LOXONIN [Concomitant]
     Route: 048
     Dates: start: 20040507, end: 20040609
  5. METHCOBAL (MECOBALAMIN) [Concomitant]
     Route: 048
     Dates: start: 20040507, end: 20040609
  6. MUCOSTA [Concomitant]
     Route: 048
     Dates: start: 20040507, end: 20040609
  7. LENDORMIN [Concomitant]
     Route: 048
     Dates: start: 20040604, end: 20040610

REACTIONS (3)
  - HEPATIC FUNCTION ABNORMAL [None]
  - PYREXIA [None]
  - RASH [None]
